FAERS Safety Report 4704681-4 (Version None)
Quarter: 2005Q2

REPORT INFORMATION
  Report Type: 
  Country: None (occurrence: None)
  Receive Date: 20050629
  Receipt Date: 20050616
  Transmission Date: 20051028
  Serious: Yes (Hospitalization)
  Sender: FDA-Public Use
  Company Number: CIP05001469

PATIENT
  Age: 93 Year
  Sex: Female
  Weight: 44.2 kg

DRUGS (10)
  1. RISEDRONATE SODIUM [Suspect]
     Indication: OSTEOPOROSIS
     Dosage: 2.5 MG DAILY, ORAL
     Route: 048
     Dates: start: 20040215, end: 20040318
  2. LORCAM (LORNOXICAM) [Concomitant]
  3. ARTZ (HYALURONATE SODIUM) [Concomitant]
  4. XYLOCAINE [Concomitant]
  5. LIDOCAINE HYDROCHLORIDE [Concomitant]
  6. BETAMETHASONE [Concomitant]
  7. NORVASC    /DEN/ A(AMLODIPINE BESILATE) [Concomitant]
  8. DEKASOFT (UBIDECARENONE) [Concomitant]
  9. NITRODERM [Concomitant]
  10. SUNRYTHM (PILSICAINIDE HYDROCHLORIDE) [Concomitant]

REACTIONS (3)
  - CARDIAC FAILURE [None]
  - CONDITION AGGRAVATED [None]
  - MARASMUS [None]
